FAERS Safety Report 6729812-6 (Version None)
Quarter: 2010Q2

REPORT INFORMATION
  Report Type: 
  Country: None (occurrence: None)
  Receive Date: 20100518
  Receipt Date: 20100506
  Transmission Date: 20101027
  Serious: Yes (Other)
  Sender: FDA-Public Use
  Company Number: US-PFIZER INC-2010041416

PATIENT
  Sex: Female
  Weight: 63.492 kg

DRUGS (1)
  1. DETROL LA [Suspect]
     Indication: HYPERTONIC BLADDER
     Dosage: 4 MG, 1X/DAY
     Route: 048
     Dates: end: 20100301

REACTIONS (2)
  - MYOCARDIAL INFARCTION [None]
  - URINARY INCONTINENCE [None]
